FAERS Safety Report 4669851-2 (Version None)
Quarter: 2005Q2

REPORT INFORMATION
  Report Type: 
  Country: None (occurrence: None)
  Receive Date: 20050520
  Receipt Date: 20050509
  Transmission Date: 20051028
  Serious: Yes (Hospitalization, Other)
  Sender: FDA-Public Use
  Company Number: 2005064532

PATIENT
  Age: 45 Year
  Sex: Female

DRUGS (1)
  1. BEXTRA [Suspect]
     Indication: ARTHRALGIA
     Dosage: 10 MG (10 MG, 1 IN 1 D)
     Dates: start: 20031015, end: 20041214

REACTIONS (7)
  - AORTIC VALVE INCOMPETENCE [None]
  - ATRIAL FIBRILLATION [None]
  - CARDIAC MURMUR [None]
  - DILATATION ATRIAL [None]
  - ECHOCARDIOGRAM ABNORMAL [None]
  - MITRAL VALVE INCOMPETENCE [None]
  - PALPITATIONS [None]
